FAERS Safety Report 7370268-0 (Version None)
Quarter: 2011Q1

REPORT INFORMATION
  Report Type: 
  Country: None (occurrence: None)
  Receive Date: 20110323
  Receipt Date: 20110317
  Transmission Date: 20110831
  Serious: Yes (Death, Life-Threatening, Hospitalization)
  Sender: FDA-Public Use
  Company Number: PHFR2011GB02022

PATIENT
  Age: 46 Year
  Sex: Male

DRUGS (4)
  1. ZOLEDRONIC ACID [Interacting]
     Indication: OSTEOPOROSIS
     Dosage: 5MG
     Route: 042
     Dates: start: 20110117
  2. AZATHIOPRINE [Suspect]
     Indication: CROHN'S DISEASE
     Route: 048
  3. INFLIXIMAB [Interacting]
     Indication: CROHN'S DISEASE
     Dosage: 300MG
     Route: 042
     Dates: end: 20110110
  4. PREDNISOLONE [Suspect]

REACTIONS (3)
  - HAEMOPHILUS BACTERAEMIA [None]
  - SEPTIC SHOCK [None]
  - LEUKOPENIA [None]
